FAERS Safety Report 11054046 (Version 1)
Quarter: 2015Q2

REPORT INFORMATION
  Report Type: Spontaneous
  Country: US (occurrence: US)
  Receive Date: 20150422
  Receipt Date: 20150422
  Transmission Date: 20150821
  Serious: Yes (Hospitalization)
  Sender: FDA-Public Use
  Company Number: US-BEH-2015050382

PATIENT
  Sex: Female
  Weight: 57 kg

DRUGS (17)
  1. COREG [Concomitant]
     Active Substance: CARVEDILOL
  2. ACIDOPHILUS PROBIOTICA [Concomitant]
  3. DILTIAZEM [Concomitant]
     Active Substance: DILTIAZEM
  4. ACETAMINOPHEN. [Concomitant]
     Active Substance: ACETAMINOPHEN
  5. HEPARIN [Concomitant]
     Active Substance: HEPARIN SODIUM
  6. VICODIN [Concomitant]
     Active Substance: ACETAMINOPHEN\HYDROCODONE BITARTRATE
  7. GABAPENTIN. [Concomitant]
     Active Substance: GABAPENTIN
  8. PAROXETINE [Concomitant]
     Active Substance: PAROXETINE\PAROXETINE HYDROCHLORIDE
  9. FORTAZ [Concomitant]
     Active Substance: CEFTAZIDIME SODIUM
  10. BACLOFEN. [Concomitant]
     Active Substance: BACLOFEN
  11. PANTOPRAZOLE [Concomitant]
     Active Substance: PANTOPRAZOLE SODIUM
  12. PROTONIX [Concomitant]
     Active Substance: PANTOPRAZOLE SODIUM
  13. ALPRAZOLAM. [Concomitant]
     Active Substance: ALPRAZOLAM
  14. DIPHENHYDRAMINE [Concomitant]
     Active Substance: DIPHENHYDRAMINE
  15. SODIUM CHLORIDE. [Concomitant]
     Active Substance: SODIUM CHLORIDE
  16. EPIPEN [Concomitant]
     Active Substance: EPINEPHRINE
  17. PRIVIGEN [Suspect]
     Active Substance: HUMAN IMMUNOGLOBULIN G
     Indication: MULTIPLE SCLEROSIS
     Route: 042

REACTIONS (2)
  - Blood pressure increased [Unknown]
  - Urinary tract infection [Unknown]

NARRATIVE: CASE EVENT DATE: 2015
